FAERS Safety Report 10519816 (Version 2)
Quarter: 2014Q4

REPORT INFORMATION
  Report Type: Report from Study
  Country: JP (occurrence: JP)
  Receive Date: 20141015
  Receipt Date: 20141210
  Transmission Date: 20150528
  Serious: Yes (Death, Other)
  Sender: FDA-Public Use
  Company Number: JP-AMGEN-JPNCT2014079741

PATIENT
  Age: 78 Year
  Sex: Female
  Weight: 34 kg

DRUGS (8)
  1. TRANSAMIN [Concomitant]
     Active Substance: TRANEXAMIC ACID
     Dosage: 750 MG, UNK
     Route: 048
     Dates: start: 20121018, end: 20130424
  2. GLUTATHIONE [Concomitant]
     Active Substance: GLUTATHIONE
     Indication: LIVER DISORDER
     Dosage: 200 MG, UNK
     Route: 065
     Dates: start: 20121102, end: 20121227
  3. ALLOID G [Concomitant]
     Active Substance: SODIUM ALGINATE
     Indication: GASTROOESOPHAGEAL REFLUX DISEASE
     Dosage: 60 ML, UNK
     Route: 048
     Dates: start: 20120906, end: 20130424
  4. SERENACE [Concomitant]
     Active Substance: HALOPERIDOL
     Indication: INSOMNIA
     Dosage: 1 MG, UNK
     Route: 048
     Dates: start: 20121102, end: 20130424
  5. GASTER [Concomitant]
     Active Substance: FAMOTIDINE
     Indication: GASTRIC ULCER
     Dosage: 40 MG, UNK
     Route: 048
     Dates: start: 20120908, end: 20130501
  6. ROMIPLOSTIM - KHK [Suspect]
     Active Substance: ROMIPLOSTIM
     Indication: PLATELET COUNT DECREASED
     Dosage: 210 MUG, UNK
     Route: 058
     Dates: start: 20121206, end: 20130425
  7. MAGMITT [Concomitant]
     Active Substance: MAGNESIUM OXIDE
     Indication: CONSTIPATION
     Dosage: 1000 MG, UNK
     Route: 048
     Dates: start: 20120825, end: 20130424
  8. ADONA                              /00056903/ [Concomitant]
     Active Substance: CARBAZOCHROME SODIUM SULFONATE
     Dosage: 90 MG, UNK
     Route: 048
     Dates: start: 20120909, end: 20130424

REACTIONS (9)
  - Hypernatraemia [Fatal]
  - Haemorrhage [Not Recovered/Not Resolved]
  - Haematuria [Not Recovered/Not Resolved]
  - Purpura [Not Recovered/Not Resolved]
  - Pancytopenia [Fatal]
  - Amylase increased [Not Recovered/Not Resolved]
  - Respiratory rate increased [Fatal]
  - Pyrexia [Not Recovered/Not Resolved]
  - Liver disorder [Recovering/Resolving]

NARRATIVE: CASE EVENT DATE: 20121206
